FAERS Safety Report 7200804-6 (Version None)
Quarter: 2010Q4

REPORT INFORMATION
  Report Type: 
  Country: None (occurrence: None)
  Receive Date: 20101228
  Receipt Date: 20101223
  Transmission Date: 20110411
  Serious: Yes (Other)
  Sender: FDA-Public Use
  Company Number: TW-ABBOTT-10P-153-0625377-00

PATIENT

DRUGS (3)
  1. REDUCTIL 15MG [Suspect]
     Indication: DRUG EXPOSURE DURING PREGNANCY
     Route: 064
  2. UNKNOWN MEDICATION [Suspect]
     Indication: DRUG EXPOSURE DURING PREGNANCY
     Route: 064
  3. UNKNOWN ANTIPHLOGISTIC [Suspect]
     Indication: DRUG EXPOSURE DURING PREGNANCY
     Route: 064

REACTIONS (2)
  - DRUG EXPOSURE DURING PREGNANCY [None]
  - PREMATURE BABY [None]
